FAERS Safety Report 6511441-0 (Version None)
Quarter: 2009Q4

REPORT INFORMATION
  Report Type: 
  Country: None (occurrence: None)
  Receive Date: 20091222
  Receipt Date: 20091210
  Transmission Date: 20100525
  Serious: Yes (Hospitalization, Other)
  Sender: FDA-Public Use
  Company Number: US-ELI_LILLY_AND_COMPANY-US200912002766

PATIENT
  Age: 47 Year
  Sex: Female

DRUGS (2)
  1. CYMBALTA [Suspect]
     Indication: DEPRESSION
     Dosage: 30 MG, UNK
     Dates: start: 20091120, end: 20091121
  2. CYMBALTA [Suspect]
     Dosage: 30 MG, UNK
     Dates: start: 20091123

REACTIONS (5)
  - DYSTONIA [None]
  - GAIT DISTURBANCE [None]
  - OBESITY SURGERY [None]
  - TREMOR [None]
  - VOMITING [None]
